FAERS Safety Report 9399344 (Version 1)
Quarter: 2013Q3

REPORT INFORMATION
  Report Type: Spontaneous
  Country: US (occurrence: None)
  Receive Date: 20130709
  Receipt Date: 20130709
  Transmission Date: 20140515
  Serious: Yes (Hospitalization)
  Sender: FDA-Public Use
  Company Number: SYM-2013-05334

PATIENT
  Age: 34 Year
  Sex: Male

DRUGS (1)
  1. XENAZINE [Suspect]
     Indication: SPINOCEREBELLAR DISORDER
     Route: 048
     Dates: start: 20120223

REACTIONS (1)
  - Pneumonia [None]
